FAERS Safety Report 4725699-1 (Version None)
Quarter: 2005Q3

REPORT INFORMATION
  Report Type: 
  Country: None (occurrence: None)
  Receive Date: 20050727
  Receipt Date: 20050712
  Transmission Date: 20060218
  Serious: Yes (Other)
  Sender: FDA-Public Use
  Company Number: GBWYE832414JUL05

PATIENT
  Sex: Female

DRUGS (2)
  1. ENBREL [Suspect]
     Indication: RHEUMATOID ARTHRITIS
     Route: 058
     Dates: start: 20031201
  2. PREDNISOLONE [Concomitant]
     Dosage: 5MG, FREQUENCY UNKNOWN
     Route: 048

REACTIONS (1)
  - TEMPORAL ARTERITIS [None]
